FAERS Safety Report 5441845-9 (Version None)
Quarter: 2007Q3

REPORT INFORMATION
  Report Type: 
  Country: None (occurrence: None)
  Receive Date: 20070904
  Receipt Date: 20070821
  Transmission Date: 20080115
  Serious: Yes (Hospitalization)
  Sender: FDA-Public Use
  Company Number: CL-ELI_LILLY_AND_COMPANY-CL200708004635

PATIENT
  Age: 26 Year
  Sex: Male

DRUGS (4)
  1. STRATTERA [Suspect]
     Indication: ATTENTION DEFICIT/HYPERACTIVITY DISORDER
     Dosage: 60 MG, DAILY (1/D)
     Route: 048
     Dates: start: 20060101, end: 20061201
  2. STRATTERA [Suspect]
     Dosage: 40 MG, DAILY (1/D)
     Route: 048
     Dates: start: 20060101
  3. STRATTERA [Suspect]
     Dosage: UNK, UNKNOWN
     Route: 065
     Dates: start: 20070301, end: 20070801
  4. MODAFINIL [Concomitant]
     Indication: HYPERSOMNIA
     Dosage: 100 MG, DAILY (1/D)
     Route: 048

REACTIONS (5)
  - CONFUSIONAL STATE [None]
  - HYPOXIA [None]
  - PALPITATIONS [None]
  - SYNCOPE [None]
  - WOUND [None]
